FAERS Safety Report 13719061 (Version 1)
Quarter: 2017Q3

REPORT INFORMATION
  Report Type: Spontaneous
  Country: US (occurrence: US)
  Receive Date: 20170705
  Receipt Date: 20170705
  Transmission Date: 20171127
  Serious: Yes (Hospitalization, Other)
  Sender: FDA-Public Use
  Company Number: US-PFIZER INC-2017290615

PATIENT
  Age: 63 Year
  Sex: Female
  Weight: 158.76 kg

DRUGS (2)
  1. LYRICA [Suspect]
     Active Substance: PREGABALIN
     Indication: DIABETIC NEUROPATHY
     Dosage: UNK
     Dates: start: 201704, end: 201704
  2. LYRICA [Suspect]
     Active Substance: PREGABALIN
     Indication: FIBROMYALGIA

REACTIONS (4)
  - Haemorrhage [Recovered/Resolved]
  - Muscular weakness [Recovering/Resolving]
  - Drug hypersensitivity [Unknown]
  - Fall [Unknown]

NARRATIVE: CASE EVENT DATE: 201704
